FAERS Safety Report 4307660-4 (Version None)
Quarter: 2004Q1

REPORT INFORMATION
  Report Type: 
  Country: None (occurrence: None)
  Receive Date: 20040225
  Receipt Date: 20030915
  Transmission Date: 20041129
  Serious: Yes (Hospitalization)
  Sender: FDA-Public Use
  Company Number: WAES 0309USA01644

PATIENT
  Age: 75 Year
  Sex: Female

DRUGS (2)
  1. ZOCOR [Suspect]
     Dosage: 80 MG/DAILY/PO; 40 MG/DAILY/PO
     Route: 048
     Dates: start: 20030101, end: 20030101
  2. ZOCOR [Suspect]
     Dosage: 80 MG/DAILY/PO; 40 MG/DAILY/PO
     Route: 048
     Dates: end: 20030101

REACTIONS (1)
  - RHABDOMYOLYSIS [None]
